FAERS Safety Report 8818350 (Version 7)
Quarter: 2014Q3

REPORT INFORMATION
  Report Type: Spontaneous
  Country: US (occurrence: US)
  Receive Date: 20121001
  Receipt Date: 20140815
  Transmission Date: 20150326
  Serious: Yes (Hospitalization, Disabling, Other)
  Sender: FDA-Public Use
  Company Number: US-009507513-1209USA009612

PATIENT
  Sex: Female
  Weight: 160 kg

DRUGS (3)
  1. GNC WOMENS HAIR SKIN AND NAILS FORMULA [Concomitant]
     Indication: ROUTINE HEALTH MAINTENANCE
  2. PREDNISONE. [Concomitant]
     Active Substance: PREDNISONE
     Indication: PRODUCT USED FOR UNKNOWN INDICATION
  3. NUVARING [Suspect]
     Active Substance: ETHINYL ESTRADIOL\ETONOGESTREL
     Indication: CONTRACEPTION
     Dosage: UNK
     Dates: start: 20040329, end: 201010

REACTIONS (18)
  - Deep vein thrombosis [Recovered/Resolved]
  - Anxiety [Unknown]
  - Tendon operation [Unknown]
  - Tarsal tunnel syndrome [Unknown]
  - Protein S deficiency [Unknown]
  - Eye disorder [Unknown]
  - Pulmonary embolism [Unknown]
  - Protein C deficiency [Unknown]
  - Hypersensitivity [Unknown]
  - Coagulopathy [Unknown]
  - Endometrial ablation [Unknown]
  - Endometrial disorder [Unknown]
  - Female sterilisation [Unknown]
  - Keratomileusis [Unknown]
  - Plantar fasciitis [Unknown]
  - Emotional distress [Unknown]
  - Bronchitis [Unknown]
  - Pain in extremity [Unknown]

NARRATIVE: CASE EVENT DATE: 20100917
